FAERS Safety Report 25742359 (Version 4)
Quarter: 2025Q3

REPORT INFORMATION
  Report Type: Spontaneous
  Country: AR (occurrence: AR)
  Receive Date: 20250829
  Receipt Date: 20250917
  Transmission Date: 20251020
  Serious: No
  Sender: PFIZER
  Company Number: AR-PFIZER INC-202500171323

PATIENT
  Age: 10 Year
  Sex: Female

DRUGS (2)
  1. GENOTROPIN [Suspect]
     Active Substance: SOMATROPIN
     Indication: Foetal growth restriction
     Dates: start: 20240815, end: 20250824
  2. GENOTROPIN [Suspect]
     Active Substance: SOMATROPIN
     Dates: start: 20240815, end: 20250824

REACTIONS (6)
  - Device material issue [Unknown]
  - Device mechanical issue [Unknown]
  - Device physical property issue [Unknown]
  - Device delivery system issue [Unknown]
  - Drug dose omission by device [Unknown]
  - Wrong technique in device usage process [Unknown]

NARRATIVE: CASE EVENT DATE: 20250825
